FAERS Safety Report 8019213-5 (Version None)
Quarter: 2011Q4

REPORT INFORMATION
  Report Type: 
  Country: None (occurrence: None)
  Receive Date: 20111229
  Receipt Date: 20111222
  Transmission Date: 20120403
  Serious: Yes (Other)
  Sender: FDA-Public Use
  Company Number: ADR-2010-9561

PATIENT
  Age: 13 Year
  Sex: Male

DRUGS (2)
  1. LIORESAL [Suspect]
     Indication: MUSCLE SPASTICITY
     Dosage: SEE B5 MCG, DAILY, INTR
     Route: 037
  2. LIORESAL [Suspect]
     Indication: CEREBRAL PALSY
     Dosage: SEE B5 MCG, DAILY, INTR
     Route: 037

REACTIONS (6)
  - IMPLANT SITE EFFUSION [None]
  - INFECTION [None]
  - WOUND SECRETION [None]
  - WHITE BLOOD CELL COUNT INCREASED [None]
  - IMPLANT SITE HAEMATOMA [None]
  - WOUND DEHISCENCE [None]
